FAERS Safety Report 11819344 (Version 1)
Quarter: 2015Q4

REPORT INFORMATION
  Report Type: Spontaneous
  Country: US (occurrence: None)
  Receive Date: 20151209
  Receipt Date: 20151209
  Transmission Date: 20160305
  Serious: No
  Sender: FDA-Public Use
  Company Number: None

PATIENT
  Sex: Female
  Weight: 109.32 kg

DRUGS (2)
  1. LEVOXYL [Suspect]
     Active Substance: LEVOTHYROXINE SODIUM
     Indication: HYPOTHYROIDISM
     Dosage: 137 MCG 175 MCG QD QD P.O.
     Route: 048
     Dates: start: 201508, end: 201510
  2. LEVOTHYROXINE. [Suspect]
     Active Substance: LEVOTHYROXINE
     Indication: HYPOTHYROIDISM
     Dosage: 137MCG, 150MCG AND 175 MCG QD P.O.
     Route: 048
     Dates: start: 201408, end: 201508

REACTIONS (10)
  - Heart rate increased [None]
  - No adverse event [None]
  - Hyperhidrosis [None]
  - Temperature intolerance [None]
  - Blood thyroid stimulating hormone increased [None]
  - Drug ineffective [None]
  - Product substitution issue [None]
  - Dysphonia [None]
  - Goitre [None]
  - Weight decreased [None]
